FAERS Safety Report 8327259-2 (Version None)
Quarter: 2012Q2

REPORT INFORMATION
  Report Type: 
  Country: None (occurrence: None)
  Receive Date: 20120502
  Receipt Date: 20120419
  Transmission Date: 20120825
  Serious: Yes (Other)
  Sender: FDA-Public Use
  Company Number: AR-AMGEN-ARGSP2012026149

PATIENT
  Age: 58 Year
  Sex: Female

DRUGS (6)
  1. ENBREL [Suspect]
     Indication: RHEUMATOID ARTHRITIS
     Dosage: 50 MG, WEEKLY
     Route: 058
     Dates: start: 20081028, end: 20120301
  2. CARVEDILOL [Concomitant]
     Dosage: UNK
  3. IBUPROFEN [Concomitant]
     Dosage: UNK
  4. METHOTREXATE [Concomitant]
     Dosage: UNK
  5. HYDROXYCHLOROQUINE SULFATE [Concomitant]
     Dosage: UNK
  6. NAPROXEN [Concomitant]
     Dosage: UNK

REACTIONS (3)
  - EAR DISORDER [None]
  - HYPERSENSITIVITY [None]
  - DRUG INEFFECTIVE [None]
